FAERS Safety Report 6834243-4 (Version None)
Quarter: 2010Q3

REPORT INFORMATION
  Report Type: 
  Country: None (occurrence: None)
  Receive Date: 20100712
  Receipt Date: 20070418
  Transmission Date: 20110219
  Serious: No
  Sender: FDA-Public Use
  Company Number: US-PFIZER INC-2007032267

PATIENT
  Sex: Female
  Weight: 71.67 kg

DRUGS (4)
  1. VARENICLINE [Suspect]
     Route: 048
     Dates: start: 20070414
  2. COFFEE [Interacting]
  3. TROSPIUM CHLORIDE [Concomitant]
     Dates: start: 20070401
  4. KEFLEX [Concomitant]
     Dates: start: 20070401

REACTIONS (4)
  - DRUG INTERACTION [None]
  - FATIGUE [None]
  - HEART RATE INCREASED [None]
  - INSOMNIA [None]
